FAERS Safety Report 18313516 (Version 1)
Quarter: 2020Q3

REPORT INFORMATION
  Report Type: Other
  Country: RO (occurrence: RO)
  Receive Date: 20200925
  Receipt Date: 20200925
  Transmission Date: 20201103
  Serious: Yes (Other)
  Sender: FDA-Public Use
  Company Number: RO-ROCHE-2658044

PATIENT
  Age: 47 Year
  Sex: Female
  Weight: 102 kg

DRUGS (2)
  1. HERCEPTIN [Suspect]
     Active Substance: TRASTUZUMAB
     Indication: BREAST CANCER
     Route: 042
  2. TAMOXIFEN [Suspect]
     Active Substance: TAMOXIFEN
     Indication: BREAST CANCER
     Route: 065

REACTIONS (6)
  - Confusional state [Unknown]
  - Breast cancer recurrent [Unknown]
  - Metastases to central nervous system [Recovered/Resolved]
  - Vascular pain [Recovered/Resolved]
  - Malaise [Unknown]
  - Injection site swelling [Recovered/Resolved]

NARRATIVE: CASE EVENT DATE: 2018
